FAERS Safety Report 17081968 (Version 1)
Quarter: 2019Q4

REPORT INFORMATION
  Report Type: Other
  Country: FR (occurrence: FR)
  Receive Date: 20191127
  Receipt Date: 20191127
  Transmission Date: 20200122
  Serious: Yes (Life-Threatening, Hospitalization, Other)
  Sender: FDA-Public Use
  Company Number: FR-VALIDUS PHARMACEUTICALS LLC-FR-2019VAL000798

PATIENT

DRUGS (4)
  1. BISOPROLOL HEMIFUMARATE [Suspect]
     Active Substance: BISOPROLOL FUMARATE
     Indication: WRONG PATIENT RECEIVED PRODUCT
     Dosage: 5 MG, TOTAL
     Route: 048
     Dates: start: 20191028, end: 20191028
  2. TOPALGIC                           /00599202/ [Suspect]
     Active Substance: TRAMADOL HYDROCHLORIDE
     Indication: WRONG PATIENT RECEIVED PRODUCT
     Dosage: 100 MG, TOTAL
     Route: 048
     Dates: start: 20191028, end: 20191028
  3. DIGOXIN. [Suspect]
     Active Substance: DIGOXIN
     Indication: WRONG PATIENT RECEIVED PRODUCT
     Dosage: 0.13 MG, TOTAL
     Route: 048
     Dates: start: 20191028, end: 20191028
  4. FUROSEMIDE. [Suspect]
     Active Substance: FUROSEMIDE
     Indication: WRONG PATIENT RECEIVED PRODUCT
     Dosage: UNK, TOTAL (SOLUTION FOR INJECTION)
     Route: 042
     Dates: start: 20191028, end: 20191028

REACTIONS (6)
  - Pneumonia aspiration [Recovering/Resolving]
  - Bradycardia [Recovered/Resolved]
  - Vomiting [Recovered/Resolved]
  - Wrong patient received product [Unknown]
  - Acute kidney injury [Recovering/Resolving]
  - Hypotension [Recovered/Resolved]

NARRATIVE: CASE EVENT DATE: 20191028
